FAERS Safety Report 9183929 (Version 1)
Quarter: 2012Q4

REPORT INFORMATION
  Report Type: 
  Country: CO (occurrence: CO)
  Receive Date: 20121030
  Receipt Date: 20121030
  Transmission Date: 20130627
  Serious: Yes (Hospitalization, Disabling)
  Sender: FDA-Public Use
  Company Number: CO-SANOFI-AVENTIS-2012SA078742

PATIENT
  Age: 68 Year
  Sex: Male

DRUGS (1)
  1. LANTUS [Suspect]
     Indication: DRUG USE FOR UNKNOWN INDICATION
     Route: 065

REACTIONS (1)
  - Limb amputation [Unknown]
